FAERS Safety Report 15459419 (Version 2)
Quarter: 2018Q4

REPORT INFORMATION
  Report Type: Spontaneous
  Country: AU (occurrence: AU)
  Receive Date: 20181003
  Receipt Date: 20181105
  Transmission Date: 20190204
  Serious: Yes (Hospitalization)
  Sender: FDA-Public Use
  Company Number: PHHY2018AU113270

PATIENT
  Age: 81 Year
  Sex: Male

DRUGS (1)
  1. CILOXAN [Suspect]
     Active Substance: CIPROFLOXACIN HYDROCHLORIDE
     Indication: POSTOPERATIVE CARE
     Route: 047

REACTIONS (5)
  - Ocular toxicity [Unknown]
  - Corneal opacity [Unknown]
  - Product quality issue [Unknown]
  - Corneal oedema [Unknown]
  - Deep anterior chamber of the eye [Unknown]

NARRATIVE: CASE EVENT DATE: 20180903
